FAERS Safety Report 9292854 (Version 4)
Quarter: 2013Q2

REPORT INFORMATION
  Report Type: Spontaneous
  Country: US (occurrence: US)
  Receive Date: 20130516
  Receipt Date: 20130612
  Transmission Date: 20140414
  Serious: Yes (Hospitalization)
  Sender: FDA-Public Use
  Company Number: US-JNJFOC-20130503200

PATIENT
  Age: 56 Year
  Sex: Male

DRUGS (16)
  1. XARELTO [Suspect]
     Indication: CEREBROVASCULAR ACCIDENT PROPHYLAXIS
     Route: 048
     Dates: start: 20130429, end: 20130501
  2. XARELTO [Suspect]
     Indication: ATRIAL FIBRILLATION
     Route: 048
     Dates: start: 20130429, end: 20130501
  3. ASPIRIN [Suspect]
     Indication: PRODUCT USED FOR UNKNOWN INDICATION
     Route: 065
     Dates: end: 20130501
  4. METHOTREXATE [Concomitant]
     Indication: RHEUMATOID ARTHRITIS
     Route: 048
     Dates: end: 20130501
  5. LOVENOX [Concomitant]
     Route: 065
     Dates: end: 20130501
  6. GABAPENTIN [Concomitant]
     Route: 065
     Dates: end: 20130501
  7. ATORVASTATIN [Concomitant]
     Route: 065
     Dates: end: 20130501
  8. METFORMIN [Concomitant]
     Indication: DIABETES MELLITUS
     Route: 065
     Dates: end: 20130501
  9. LISINOPRIL [Concomitant]
     Route: 065
     Dates: end: 20130501
  10. GLIMEPIRIDE [Concomitant]
     Indication: DIABETES MELLITUS
     Route: 065
     Dates: end: 20130501
  11. DILTIAZEM [Concomitant]
     Route: 065
  12. METOPROLOL [Concomitant]
     Route: 065
  13. LASIX [Concomitant]
     Route: 065
  14. POTASSIUM [Concomitant]
     Route: 065
  15. VICODIN [Concomitant]
     Route: 065
  16. ALBUTEROL [Concomitant]
     Route: 065

REACTIONS (7)
  - Stevens-Johnson syndrome [Recovering/Resolving]
  - Renal failure acute [Recovering/Resolving]
  - Hepatic function abnormal [Unknown]
  - Thrombocytopenia [Unknown]
  - Haemoglobin decreased [Unknown]
  - Haematocrit decreased [Unknown]
  - Rash [Unknown]
